FAERS Safety Report 6683978-5 (Version None)
Quarter: 2010Q2

REPORT INFORMATION
  Report Type: 
  Country: None (occurrence: None)
  Receive Date: 20100416
  Receipt Date: 20100407
  Transmission Date: 20101027
  Serious: Yes (Hospitalization)
  Sender: FDA-Public Use
  Company Number: US-JNJFOC-20100402362

PATIENT
  Sex: Male
  Weight: 56.7 kg

DRUGS (7)
  1. INFLIXIMAB [Suspect]
     Indication: INFLAMMATORY BOWEL DISEASE
     Route: 042
  2. INFLIXIMAB [Suspect]
     Route: 042
  3. INFLIXIMAB [Suspect]
     Route: 042
  4. 5-ASA [Concomitant]
  5. MULTI-VITAMINS [Concomitant]
     Dosage: 1 TABLET DAILY
  6. SLOW FE [Concomitant]
     Route: 048
  7. LEVSIN [Concomitant]
     Route: 048

REACTIONS (2)
  - ILEOSTOMY [None]
  - INTESTINAL ANASTOMOSIS [None]
